FAERS Safety Report 25662394 (Version 1)
Quarter: 2025Q3

REPORT INFORMATION
  Report Type: Spontaneous
  Country: CH (occurrence: CH)
  Receive Date: 20250810
  Receipt Date: 20250810
  Transmission Date: 20251020
  Serious: Yes (Hospitalization)
  Sender: PRINSTON PHARMACEUTICAL
  Company Number: CH-PRINSTON PHARMACEUTICAL INC.-2025PRN00259

PATIENT
  Age: 39 Year
  Sex: Female

DRUGS (1)
  1. DULOXETINE [Suspect]
     Active Substance: DULOXETINE
     Indication: Neuralgia
     Dosage: 60 MG, 1X/DAY (2.5 MONTHS)

REACTIONS (1)
  - Reversible cerebral vasoconstriction syndrome [Recovering/Resolving]
